FAERS Safety Report 9829896 (Version 1)
Quarter: 2014Q1

REPORT INFORMATION
  Report Type: Spontaneous
  Country: RU (occurrence: RU)
  Receive Date: 20140120
  Receipt Date: 20140120
  Transmission Date: 20141002
  Serious: Yes (Other)
  Sender: FDA-Public Use
  Company Number: RU-ASTELLAS-2014EU000290

PATIENT
  Age: 15 Year
  Sex: Female

DRUGS (6)
  1. TACROLIMUS SYSTEMIC [Suspect]
     Indication: PROPHYLAXIS AGAINST GRAFT VERSUS HOST DISEASE
     Dosage: UNK
     Route: 065
  2. FLUDARABINE [Suspect]
     Dosage: 150 MG/M2, UNKNOWN/D
     Route: 065
  3. CYCLOPHOSPHAMIDE [Suspect]
     Dosage: 100 MG/M2, UNKNOWN/D
     Route: 065
  4. ANTITHYMOCYTE IMMUNOGLOBULIN (HORSE) [Suspect]
     Dosage: 90 MG/M2, UNKNOWN/D
     Route: 065
  5. ECULIZUMAB [Suspect]
     Dosage: 300 MG, WEEKLY
     Route: 065
  6. METHOTREXATE [Suspect]
     Indication: PROPHYLAXIS AGAINST GRAFT VERSUS HOST DISEASE
     Dosage: UNK
     Route: 065

REACTIONS (2)
  - Off label use [Unknown]
  - Acute graft versus host disease in skin [Recovering/Resolving]
